FAERS Safety Report 12259574 (Version 1)
Quarter: 2016Q2

REPORT INFORMATION
  Report Type: Spontaneous
  Country: US (occurrence: US)
  Receive Date: 20160412
  Receipt Date: 20160412
  Transmission Date: 20160815
  Serious: No
  Sender: FDA-Public Use
  Company Number: US-SA-2015SA121050

PATIENT
  Sex: Male

DRUGS (1)
  1. ALLEGRA ALLERGY [Suspect]
     Active Substance: FEXOFENADINE HYDROCHLORIDE
     Route: 048

REACTIONS (5)
  - Pyrexia [Unknown]
  - Swollen tongue [Unknown]
  - Paraesthesia [Unknown]
  - Erythema [Unknown]
  - Abnormal behaviour [Unknown]
